FAERS Safety Report 19074807 (Version 1)
Quarter: 2021Q1

REPORT INFORMATION
  Report Type: Spontaneous
  Country: DE (occurrence: DE)
  Receive Date: 20210330
  Receipt Date: 20210330
  Transmission Date: 20210420
  Serious: Yes (Hospitalization)
  Sender: FDA-Public Use
  Company Number: DE-BAUSCH-BL-2021-010185

PATIENT
  Age: 42 Year
  Sex: Male
  Weight: 83 kg

DRUGS (1)
  1. VENLAFAXIN [Suspect]
     Active Substance: VENLAFAXINE HYDROCHLORIDE
     Indication: OVERDOSE
     Dosage: THE PATIENT PRESUMABLY TOOK TAKE AN OVERDOSE OF VENLAFAXINE
     Route: 048

REACTIONS (2)
  - Poisoning [Recovered/Resolved]
  - Amnesia [Recovered/Resolved]

NARRATIVE: CASE EVENT DATE: 20210223
